FAERS Safety Report 16701880 (Version 1)
Quarter: 2019Q3

REPORT INFORMATION
  Report Type: Spontaneous
  Country: US (occurrence: US)
  Receive Date: 20190718
  Receipt Date: 20190718
  Transmission Date: 20191004
  Serious: Yes (Other)
  Sender: FDA-Public Use
  Company Number: None

PATIENT
  Age: 26 Year
  Sex: Male
  Weight: 89.1 kg

DRUGS (5)
  1. BUSPIRONE [Concomitant]
     Active Substance: BUSPIRONE HYDROCHLORIDE
  2. ABILIFY [Concomitant]
     Active Substance: ARIPIPRAZOLE
  3. TRAZODONE [Concomitant]
     Active Substance: TRAZODONE HYDROCHLORIDE
  4. FLUOXETINE [Suspect]
     Active Substance: FLUOXETINE HYDROCHLORIDE
     Dosage: ?          OTHER FREQUENCY:ANY;?
     Route: 048
     Dates: start: 20190718
  5. LITHIUM. [Suspect]
     Active Substance: LITHIUM

REACTIONS (16)
  - Muscular weakness [None]
  - Asthenia [None]
  - Pollakiuria [None]
  - Somnolence [None]
  - Insomnia [None]
  - Hyperhidrosis [None]
  - Yawning [None]
  - Tremor [None]
  - Fatigue [None]
  - Dry mouth [None]
  - Micturition urgency [None]
  - Coordination abnormal [None]
  - Diarrhoea [None]
  - Nervousness [None]
  - Nausea [None]
  - Hypertonic bladder [None]

NARRATIVE: CASE EVENT DATE: 20190718
